FAERS Safety Report 9780727 (Version 1)
Quarter: 2013Q4

REPORT INFORMATION
  Report Type: Report from Study
  Country: CA (occurrence: CA)
  Receive Date: 20131224
  Receipt Date: 20131224
  Transmission Date: 20140711
  Serious: Yes (Other)
  Sender: FDA-Public Use
  Company Number: CA-JNJFOC-20131213817

PATIENT
  Age: 35 Year
  Sex: Female
  Weight: 122 kg

DRUGS (7)
  1. REMICADE [Suspect]
     Indication: COLITIS ULCERATIVE
     Route: 042
     Dates: start: 20110325
  2. SALOFALK [Concomitant]
     Route: 065
  3. IMURAN [Concomitant]
     Route: 065
  4. BIRTH CONTROL PILL [Concomitant]
     Route: 065
  5. PANTOLOC [Concomitant]
     Route: 065
  6. TYLENOL [Concomitant]
     Route: 065
  7. ATIVAN [Concomitant]
     Route: 065

REACTIONS (1)
  - Nephrolithiasis [Recovered/Resolved]
